FAERS Safety Report 16346795 (Version 1)
Quarter: 2019Q2

REPORT INFORMATION
  Report Type: Spontaneous
  Country: US (occurrence: US)
  Receive Date: 20190417
  Receipt Date: 20190417
  Transmission Date: 20190711
  Serious: Yes (Life-Threatening, Hospitalization)
  Sender: FDA-Public Use
  Company Number: None

PATIENT
  Age: 55 Year
  Sex: Male
  Weight: 88.4 kg

DRUGS (25)
  1. HALOPERIDOL LACTATE 5MG/ML INJECTION [Suspect]
     Active Substance: HALOPERIDOL LACTATE
     Indication: AGITATION
     Dosage: ?          OTHER DOSE:2.5 MG;?
     Route: 042
     Dates: start: 20190314, end: 20190314
  2. DICLOFENAC SODIUM TOPICAL GEL [Concomitant]
  3. DOCUSATE SODIUM 110MG [Concomitant]
  4. OMEPRAZOLE. [Concomitant]
     Active Substance: OMEPRAZOLE
  5. PHENOL 1.4% AEROSOL SPRAY [Concomitant]
  6. PYRIDOXINE HCL [Concomitant]
     Active Substance: PYRIDOXINE HYDROCHLORIDE
  7. CLOPIDOGREL [Concomitant]
     Active Substance: CLOPIDOGREL BISULFATE
  8. ISOSORBIDE MONONITRATE. [Concomitant]
     Active Substance: ISOSORBIDE MONONITRATE
  9. OXYCODONE 5MG [Concomitant]
     Active Substance: OXYCODONE
  10. METOLAZONE 5MG [Concomitant]
  11. POLYETHYLENE GLYCOL [Concomitant]
     Active Substance: POLYETHYLENE GLYCOLS
  12. CARVEDILOL 3.125 MG [Concomitant]
     Active Substance: CARVEDILOL
  13. INSULIN ASPURT [Concomitant]
  14. ACETAMINOPHEN 325 - 650 MG [Concomitant]
  15. DESOXIMETASONE 0.05% TOPICAL GEL PRN [Concomitant]
  16. LEROTHYROXINE 175 MCG [Concomitant]
  17. LIDOCAINE 5% [Concomitant]
     Active Substance: LIDOCAINE
  18. NITROGLYCERIN. [Concomitant]
     Active Substance: NITROGLYCERIN
  19. ROSURASTATIN F10 MG [Concomitant]
  20. FORGEMIDE 100 MG [Concomitant]
  21. BUTALBIAL/APAP [Concomitant]
  22. CYANECOLOALAMIN 1000MCG [Concomitant]
  23. ASPIRIN 81MG [Concomitant]
     Active Substance: ASPIRIN
  24. CALCIUM ACETATE 667 MG [Concomitant]
     Active Substance: CALCIUM ACETATE
  25. LISINOPRIL. [Concomitant]
     Active Substance: LISINOPRIL

REACTIONS (5)
  - Endotracheal intubation complication [None]
  - Sinus tachycardia [None]
  - Torsade de pointes [None]
  - Aspiration [None]
  - Pulseless electrical activity [None]

NARRATIVE: CASE EVENT DATE: 20190314
